FAERS Safety Report 25064282 (Version 2)
Quarter: 2025Q3

REPORT INFORMATION
  Report Type: Spontaneous
  Country: EU (occurrence: EU)
  Receive Date: 20250311
  Receipt Date: 20250803
  Transmission Date: 20251021
  Serious: Yes (Other)
  Sender: ALEXION PHARMACEUTICALS
  Company Number: None

PATIENT
  Age: 72 Year
  Sex: Male
  Weight: 107 kg

DRUGS (1)
  1. DAPAGLIFLOZIN [Suspect]
     Active Substance: DAPAGLIFLOZIN
     Indication: Diabetes mellitus
     Dosage: 10 MILLIGRAM, QD
     Dates: start: 20240321, end: 202411

REACTIONS (4)
  - Dermatitis bullous [Recovered/Resolved]
  - Dermatitis [Recovered/Resolved]
  - Blister [Recovered/Resolved]
  - Eschar [Recovered/Resolved]

NARRATIVE: CASE EVENT DATE: 20241020
